FAERS Safety Report 21703348 (Version 1)
Quarter: 2022Q4

REPORT INFORMATION
  Report Type: Spontaneous
  Country: US (occurrence: US)
  Receive Date: 20221209
  Receipt Date: 20221209
  Transmission Date: 20230112
  Serious: No
  Sender: FDA-Public Use
  Company Number: US-SA-SAC20221208000953

PATIENT
  Age: 62 Year
  Sex: Male

DRUGS (2)
  1. DUPIXENT [Interacting]
     Active Substance: DUPILUMAB
     Indication: Eczema
     Dosage: 300 MG, OTHER
     Route: 058
     Dates: start: 202209
  2. METOPROLOL [Interacting]
     Active Substance: METOPROLOL

REACTIONS (3)
  - Erythropsia [Unknown]
  - Photopsia [Unknown]
  - Drug interaction [Unknown]
